FAERS Safety Report 4478213-2 (Version None)
Quarter: 2004Q3

REPORT INFORMATION
  Report Type: 
  Country: None (occurrence: None)
  Receive Date: 20040923
  Receipt Date: 20040810
  Transmission Date: 20050211
  Serious: No
  Sender: FDA-Public Use
  Company Number: USA040875225

PATIENT
  Age: 48 Year
  Sex: Female

DRUGS (8)
  1. FORTEO [Suspect]
     Indication: OSTEOPOROSIS
     Dates: start: 20040401
  2. ALPRAZOLAM [Concomitant]
  3. PRILOSEC [Concomitant]
  4. TRAZODONE HCL [Concomitant]
  5. EFFEXOR [Concomitant]
  6. MULTIVITAMIN [Concomitant]
  7. CALCIUM WITH VITAMIN D [Concomitant]
  8. MAGNESIUM (MAGNESIUM ASPARTATE) [Concomitant]

REACTIONS (6)
  - DIZZINESS [None]
  - HEART RATE INCREASED [None]
  - LETHARGY [None]
  - MUSCLE CRAMP [None]
  - MYALGIA [None]
  - VISUAL DISTURBANCE [None]
